FAERS Safety Report 4753591-5 (Version None)
Quarter: 2005Q3

REPORT INFORMATION
  Report Type: 
  Country: None (occurrence: None)
  Receive Date: 20050824
  Receipt Date: 20050812
  Transmission Date: 20060218
  Serious: Yes (Hospitalization)
  Sender: FDA-Public Use
  Company Number: ST-2005-008500

PATIENT
  Age: 73 Year
  Sex: Female
  Weight: 45 kg

DRUGS (10)
  1. OLMETEC [Suspect]
     Indication: HYPERTENSION
     Dosage: 10 MG QD PO
     Route: 048
     Dates: start: 20050502, end: 20050712
  2. SELBEX [Concomitant]
  3. NOVOLIN R [Concomitant]
  4. FERROMIA [Concomitant]
  5. AMLODIN [Concomitant]
  6. LENDORMIN [Concomitant]
  7. NU LOTAN [Concomitant]
  8. ASPIRIN [Concomitant]
  9. LASIX [Concomitant]
  10. ESPO     /SCH/ [Concomitant]

REACTIONS (4)
  - ATRIOVENTRICULAR BLOCK SECOND DEGREE [None]
  - CONDITION AGGRAVATED [None]
  - HYPERKALAEMIA [None]
  - SINUS ARREST [None]
